FAERS Safety Report 15493125 (Version 3)
Quarter: 2018Q4

REPORT INFORMATION
  Report Type: Spontaneous
  Country: US (occurrence: US)
  Receive Date: 20181012
  Receipt Date: 20181227
  Transmission Date: 20190205
  Serious: Yes (Other)
  Sender: FDA-Public Use
  Company Number: US-SA-2018SA280883

PATIENT
  Age: 68 Year
  Sex: Female
  Weight: 70 kg

DRUGS (67)
  1. HERCEPTIN [Concomitant]
     Active Substance: TRASTUZUMAB
     Dosage: 180 MG, QW
     Route: 065
     Dates: start: 20030410, end: 20030410
  2. HERCEPTIN [Concomitant]
     Active Substance: TRASTUZUMAB
     Dosage: 180 MG, QW
     Route: 065
     Dates: start: 20030416, end: 20030416
  3. HERCEPTIN [Concomitant]
     Active Substance: TRASTUZUMAB
     Dosage: 150 MG, QW
     Route: 065
     Dates: start: 20030807, end: 20030807
  4. CARBOPLATIN. [Concomitant]
     Active Substance: CARBOPLATIN
     Dosage: 640 MG, UNK
     Route: 065
     Dates: start: 20030807, end: 20030807
  5. DECADRON [DEXAMETHASONE] [Concomitant]
     Dosage: 10 UNK, UNK
     Route: 065
     Dates: start: 20030403, end: 20030403
  6. DECADRON [DEXAMETHASONE] [Concomitant]
     Dosage: 10 UNK, UNK
     Dates: start: 20030904, end: 20030904
  7. AREDIA [Concomitant]
     Active Substance: PAMIDRONATE DISODIUM
     Dosage: 90 MG, UNK
     Route: 065
     Dates: start: 20030224, end: 20030224
  8. NEUPOGEN [Concomitant]
     Active Substance: FILGRASTIM
     Dosage: 480 UNK, UNK
     Route: 065
     Dates: start: 20030228, end: 20030228
  9. NEULASTA [Concomitant]
     Active Substance: PEGFILGRASTIM
     Dosage: 6 MG, UNK
     Route: 065
     Dates: start: 20030516, end: 20030516
  10. HERCEPTIN [Concomitant]
     Active Substance: TRASTUZUMAB
     Dosage: 180 MG, QW
     Route: 065
     Dates: start: 20030515, end: 20030515
  11. HERCEPTIN [Concomitant]
     Active Substance: TRASTUZUMAB
     Dosage: 150 MG, QW
     Route: 065
     Dates: start: 20030821, end: 20030821
  12. CARBOPLATIN. [Concomitant]
     Active Substance: CARBOPLATIN
     Dosage: 650 MG, UNK
     Route: 065
     Dates: start: 20030403, end: 20030403
  13. ANZEMET [Concomitant]
     Active Substance: DOLASETRON MESYLATE
     Dosage: 180 UNK, UNK
     Route: 065
     Dates: start: 20030423, end: 20030423
  14. ANZEMET [Concomitant]
     Active Substance: DOLASETRON MESYLATE
     Dosage: 180 UNK, UNK
     Dates: start: 20030515, end: 20030515
  15. ANZEMET [Concomitant]
     Active Substance: DOLASETRON MESYLATE
     Dosage: 140 MG, UNK
     Route: 065
     Dates: start: 20030807, end: 20030807
  16. DECADRON [DEXAMETHASONE] [Concomitant]
     Dosage: 10 UNK, UNK
     Route: 065
     Dates: start: 20030313, end: 20030313
  17. NEULASTA [Concomitant]
     Active Substance: PEGFILGRASTIM
     Dosage: 6 MG, UNK
     Route: 065
     Dates: start: 20030905, end: 20030905
  18. ARANESP [Concomitant]
     Active Substance: DARBEPOETIN ALFA
     Dosage: 300 UG, UNK
     Dates: start: 20030807, end: 20030807
  19. HERCEPTIN [Concomitant]
     Active Substance: TRASTUZUMAB
     Dosage: 180 MG, UNK
     Route: 065
     Dates: start: 20030313, end: 20030313
  20. HERCEPTIN [Concomitant]
     Active Substance: TRASTUZUMAB
     Dosage: 180 MG, QW
     Route: 065
     Dates: start: 20030612, end: 20030612
  21. HERCEPTIN [Concomitant]
     Active Substance: TRASTUZUMAB
     Dosage: 150 MG, QW
     Route: 065
     Dates: start: 20030904, end: 20030904
  22. CARBOPLATIN. [Concomitant]
     Active Substance: CARBOPLATIN
     Dosage: 650 MG, UNK
     Route: 065
     Dates: start: 20030313, end: 20030313
  23. CARBOPLATIN. [Concomitant]
     Active Substance: CARBOPLATIN
     Dosage: 640 MG, UNK
     Route: 065
     Dates: start: 20030904, end: 20030904
  24. DECADRON [DEXAMETHASONE] [Concomitant]
     Dosage: 10 UNK, UNK
     Route: 065
     Dates: start: 20030221, end: 20030221
  25. HERCEPTIN [Concomitant]
     Active Substance: TRASTUZUMAB
     Dosage: 180 MG, QW
     Route: 065
     Dates: start: 20030501, end: 20030501
  26. HERCEPTIN [Concomitant]
     Active Substance: TRASTUZUMAB
     Dosage: 180 MG, QW
     Route: 065
     Dates: start: 20030707, end: 20030707
  27. NEULASTA [Concomitant]
     Active Substance: PEGFILGRASTIM
     Dosage: 6 MG, UNK
     Route: 065
     Dates: start: 20030424, end: 20030424
  28. NEULASTA [Concomitant]
     Active Substance: PEGFILGRASTIM
     Dosage: 6 MG, UNK
     Route: 065
     Dates: start: 20030624, end: 20030624
  29. ARANESP [Concomitant]
     Active Substance: DARBEPOETIN ALFA
     Dosage: MORE THAN 300 UG
     Dates: start: 20030605, end: 20030605
  30. ARANESP [Concomitant]
     Active Substance: DARBEPOETIN ALFA
     Dosage: 300 UG, UNK
     Route: 065
     Dates: start: 20030619, end: 20030619
  31. HERCEPTIN [Concomitant]
     Active Substance: TRASTUZUMAB
     Dosage: 180 MG, UNK
     Route: 065
     Dates: start: 20030306, end: 20030306
  32. HERCEPTIN [Concomitant]
     Active Substance: TRASTUZUMAB
     Dosage: 180 MG, QW
     Route: 065
     Dates: start: 20030403, end: 20030403
  33. HERCEPTIN [Concomitant]
     Active Substance: TRASTUZUMAB
     Dosage: 180 MG, QW
     Route: 065
     Dates: start: 20030619, end: 20030619
  34. HERCEPTIN [Concomitant]
     Active Substance: TRASTUZUMAB
     Dosage: 180 MG, QW
     Route: 065
     Dates: start: 20060630, end: 20060630
  35. DECADRON [DEXAMETHASONE] [Concomitant]
     Dosage: 10 UNK, UNK
     Route: 065
     Dates: start: 20030423, end: 20030423
  36. DECADRON [DEXAMETHASONE] [Concomitant]
     Dosage: 10 UNK, UNK
     Dates: start: 20030623, end: 20030623
  37. NEULASTA [Concomitant]
     Active Substance: PEGFILGRASTIM
     Dosage: 60 MG, UNK
     Route: 065
     Dates: start: 20030314, end: 20030314
  38. HERCEPTIN [Concomitant]
     Active Substance: TRASTUZUMAB
     Dosage: 390 MG, UNK
     Route: 065
     Dates: start: 20030221, end: 20030221
  39. HERCEPTIN [Concomitant]
     Active Substance: TRASTUZUMAB
     Dosage: 150 MG, QW
     Route: 065
     Dates: start: 20030814, end: 20030814
  40. CARBOPLATIN. [Concomitant]
     Active Substance: CARBOPLATIN
     Dosage: 650 MG, UNK
     Route: 065
     Dates: start: 20030423, end: 20030423
  41. ANZEMET [Concomitant]
     Active Substance: DOLASETRON MESYLATE
     Dosage: 180 UNK, UNK
     Route: 065
     Dates: start: 20030623, end: 20030623
  42. NEUPOGEN [Concomitant]
     Active Substance: FILGRASTIM
     Dosage: 480 MG, UNK
     Route: 065
     Dates: start: 20030227, end: 20030227
  43. ARANESP [Concomitant]
     Active Substance: DARBEPOETIN ALFA
     Dosage: 200 UG, UNK
     Route: 065
     Dates: start: 20030505, end: 20030505
  44. ARANESP [Concomitant]
     Active Substance: DARBEPOETIN ALFA
     Dosage: 300 UG, UNK
     Dates: start: 20030714, end: 20030714
  45. ARANESP [Concomitant]
     Active Substance: DARBEPOETIN ALFA
     Dosage: 300 UG, UNK
     Dates: start: 20030821, end: 20030821
  46. TAXOTERE [Suspect]
     Active Substance: DOCETAXEL
     Indication: BREAST CANCER FEMALE
     Dosage: 150 MG, Q3W
     Route: 042
     Dates: start: 20030221, end: 20030221
  47. HERCEPTIN [Concomitant]
     Active Substance: TRASTUZUMAB
     Dosage: 180 MG, UNK
     Route: 065
     Dates: start: 20030320, end: 20030320
  48. HERCEPTIN [Concomitant]
     Active Substance: TRASTUZUMAB
     Dosage: 180 MG, QW
     Route: 065
     Dates: start: 20030327, end: 20030327
  49. HERCEPTIN [Concomitant]
     Active Substance: TRASTUZUMAB
     Dosage: 180 MG, QW
     Route: 065
     Dates: start: 20030508, end: 20030508
  50. HERCEPTIN [Concomitant]
     Active Substance: TRASTUZUMAB
     Dosage: 180 MG, QW
     Route: 065
     Dates: start: 20030522, end: 20030522
  51. HERCEPTIN [Concomitant]
     Active Substance: TRASTUZUMAB
     Dosage: 180 MG, QW
     Route: 065
     Dates: start: 20030529, end: 20030529
  52. HERCEPTIN [Concomitant]
     Active Substance: TRASTUZUMAB
     Dosage: 180 MG, QW
     Route: 065
     Dates: start: 20030605, end: 20030605
  53. CARBOPLATIN. [Concomitant]
     Active Substance: CARBOPLATIN
     Dosage: 650 MG, UNK
     Route: 065
     Dates: start: 20030515, end: 20030515
  54. ANZEMET [Concomitant]
     Active Substance: DOLASETRON MESYLATE
     Dosage: 180 UNK, UNK
     Route: 065
     Dates: start: 20030221, end: 20030221
  55. ANZEMET [Concomitant]
     Active Substance: DOLASETRON MESYLATE
     Dosage: 180 UNK, UNK
     Route: 065
     Dates: start: 20030313, end: 20030313
  56. ANZEMET [Concomitant]
     Active Substance: DOLASETRON MESYLATE
     Dosage: 140 MG, UNK
     Dates: start: 20030904, end: 20030904
  57. DECADRON [DEXAMETHASONE] [Concomitant]
     Dosage: 10 UNK, UNK
     Route: 065
     Dates: start: 20030515, end: 20030515
  58. ARANESP [Concomitant]
     Active Substance: DARBEPOETIN ALFA
     Dosage: 200 UNK, UNK
     Route: 065
     Dates: start: 20030522, end: 20030522
  59. ARANESP [Concomitant]
     Active Substance: DARBEPOETIN ALFA
     Dosage: 300 UG, UNK
     Route: 065
     Dates: start: 20030630, end: 20030630
  60. TAXOTERE [Suspect]
     Active Substance: DOCETAXEL
     Dosage: 135 MG, Q3W
     Route: 042
     Dates: start: 20030904, end: 20030904
  61. HERCEPTIN [Concomitant]
     Active Substance: TRASTUZUMAB
     Dosage: 180 MG, QW
     Route: 065
     Dates: start: 20030423, end: 20030423
  62. CARBOPLATIN. [Concomitant]
     Active Substance: CARBOPLATIN
     Dosage: 650 MG, UNK
     Route: 065
     Dates: start: 20030221, end: 20030221
  63. CARBOPLATIN. [Concomitant]
     Active Substance: CARBOPLATIN
     Dosage: 650 MG, UNK
     Dates: start: 20030623, end: 20030623
  64. ANZEMET [Concomitant]
     Active Substance: DOLASETRON MESYLATE
     Dosage: 180 UNK, UNK
     Route: 065
     Dates: start: 20030403, end: 20030403
  65. DECADRON [DEXAMETHASONE] [Concomitant]
     Dosage: 10 UNK, UNK
     Route: 065
     Dates: start: 20030807, end: 20030807
  66. NEULASTA [Concomitant]
     Active Substance: PEGFILGRASTIM
     Dosage: 6 MG, UNK
     Dates: start: 20030404, end: 20030404
  67. NEULASTA [Concomitant]
     Active Substance: PEGFILGRASTIM
     Dosage: 6 MG, UNK
     Route: 065
     Dates: start: 20030808, end: 20030808

REACTIONS (1)
  - Alopecia [Recovering/Resolving]

NARRATIVE: CASE EVENT DATE: 2003
